FAERS Safety Report 25621699 (Version 1)
Quarter: 2025Q3

REPORT INFORMATION
  Report Type: Spontaneous
  Country: US (occurrence: US)
  Receive Date: 20250730
  Receipt Date: 20250730
  Transmission Date: 20251021
  Serious: Yes (Death, Life-Threatening, Other)
  Sender: DR REDDYS
  Company Number: None

PATIENT
  Age: 7 Decade
  Sex: Female

DRUGS (1)
  1. TACROLIMUS [Suspect]
     Active Substance: TACROLIMUS
     Indication: Immunosuppressant drug therapy

REACTIONS (3)
  - Hepatocellular carcinoma [Fatal]
  - Metastases to lung [Recovering/Resolving]
  - Metastases to adrenals [Recovering/Resolving]
